FAERS Safety Report 7814455-3 (Version None)
Quarter: 2011Q4

REPORT INFORMATION
  Report Type: 
  Country: None (occurrence: None)
  Receive Date: 20111014
  Receipt Date: 20111010
  Transmission Date: 20120403
  Serious: No
  Sender: FDA-Public Use
  Company Number: NZ-B.I. PHARMACEUTICALS,INC./RIDGEFIELD-2011-AU-01544AU

PATIENT
  Sex: Female
  Weight: 56 kg

DRUGS (6)
  1. CILAZAPRIL [Concomitant]
     Dosage: 2.5 MG
     Dates: start: 20101112
  2. SPIRONOLACTONE [Concomitant]
     Dosage: 12.5 MG
     Dates: start: 20110813
  3. PRADAXA [Suspect]
     Indication: ATRIAL FIBRILLATION
     Dosage: 220 MG
     Dates: start: 20110819, end: 20110904
  4. DIGOXIN [Concomitant]
     Dosage: 250 MCG
     Dates: start: 20110114
  5. LEVOTHYROXINE SODIUM [Concomitant]
     Dosage: 100 MCG
     Dates: start: 19880101
  6. FUROSEMIDE [Concomitant]
     Dosage: 80 MG
     Dates: start: 20100401

REACTIONS (1)
  - DYSPEPSIA [None]
